FAERS Safety Report 4364671-0 (Version None)
Quarter: 2004Q2

REPORT INFORMATION
  Report Type: 
  Country: None (occurrence: None)
  Receive Date: 20040526
  Receipt Date: 20031021
  Transmission Date: 20050107
  Serious: No
  Sender: FDA-Public Use
  Company Number: US-GLAXOSMITHKLINE-A0431109A

PATIENT
  Age: 47 Year
  Sex: Female

DRUGS (2)
  1. FLOLAN [Suspect]
  2. FENTANYL [Concomitant]
     Dosage: 100U SEE DOSAGE TEXT
     Route: 062

REACTIONS (1)
  - THROMBOCYTOPENIA [None]
